FAERS Safety Report 5139006-6 (Version None)
Quarter: 2006Q4

REPORT INFORMATION
  Report Type: 
  Country: None (occurrence: None)
  Receive Date: 20061030
  Receipt Date: 20060531
  Transmission Date: 20070319
  Serious: No
  Sender: FDA-Public Use
  Company Number: US-GLAXOSMITHKLINE-A0607785A

PATIENT
  Age: 42 Year
  Sex: Female
  Weight: 60.9 kg

DRUGS (1)
  1. ADVAIR HFA [Suspect]
     Indication: CHRONIC OBSTRUCTIVE PULMONARY DISEASE
     Dosage: 1PUFF TWICE PER DAY
     Route: 055
     Dates: start: 20040101, end: 20060101

REACTIONS (5)
  - ARTHRALGIA [None]
  - INCREASED TENDENCY TO BRUISE [None]
  - JOINT EFFUSION [None]
  - OSTEOARTHRITIS [None]
  - PERIORBITAL HAEMATOMA [None]
